FAERS Safety Report 16152521 (Version 1)
Quarter: 2019Q2

REPORT INFORMATION
  Report Type: Report from Study
  Country: IT (occurrence: IT)
  Receive Date: 20190403
  Receipt Date: 20190403
  Transmission Date: 20190711
  Serious: Yes (Other)
  Sender: FDA-Public Use
  Company Number: IT-ACCORD-117568

PATIENT
  Age: 21 Year
  Sex: Female

DRUGS (2)
  1. EN [Suspect]
     Active Substance: DELORAZEPAM
     Indication: MENTAL DISORDER
     Dosage: STRENGTH 1 MG/ML
     Route: 048
     Dates: start: 20190105, end: 20190105
  2. SERTRALINE [Suspect]
     Active Substance: SERTRALINE HYDROCHLORIDE
     Indication: MENTAL DISORDER
     Route: 048
     Dates: start: 20190105, end: 20190105

REACTIONS (4)
  - Sopor [Recovering/Resolving]
  - Somnolence [Recovering/Resolving]
  - Drug abuse [Unknown]
  - Hypoaesthesia [Recovering/Resolving]

NARRATIVE: CASE EVENT DATE: 20190105
